FAERS Safety Report 19067724 (Version 2)
Quarter: 2021Q2

REPORT INFORMATION
  Report Type: Spontaneous
  Country: US (occurrence: US)
  Receive Date: 20210329
  Receipt Date: 20210430
  Transmission Date: 20210717
  Serious: No
  Sender: FDA-Public Use
  Company Number: NVSC2021US070710

PATIENT
  Sex: Male

DRUGS (4)
  1. RYDAPT [Suspect]
     Active Substance: MIDOSTAURIN
     Indication: PRODUCT USED FOR UNKNOWN INDICATION
     Dosage: 2 DF, BID (TAKE 2 CAPSULES BY MOUTH 2 TIMES DAILY (WITH MEALS).  TAKE ON DAYS 8?21 OF EACH CHEMOTHER
     Route: 048
  2. POSACONAZOLE [Concomitant]
     Active Substance: POSACONAZOLE
     Indication: PRODUCT USED FOR UNKNOWN INDICATION
     Dosage: UNK
     Route: 065
  3. VIT D [Concomitant]
     Active Substance: VITAMIN D NOS
     Indication: PRODUCT USED FOR UNKNOWN INDICATION
     Dosage: UNK
     Route: 065
  4. ACYCLOVIR. [Concomitant]
     Active Substance: ACYCLOVIR
     Indication: PRODUCT USED FOR UNKNOWN INDICATION
     Dosage: UNK
     Route: 065

REACTIONS (2)
  - Nausea [Unknown]
  - Headache [Unknown]
